FAERS Safety Report 22359427 (Version 4)
Quarter: 2023Q4

REPORT INFORMATION
  Report Type: Report from Study
  Country: CA (occurrence: CA)
  Receive Date: 20230524
  Receipt Date: 20231116
  Transmission Date: 20240110
  Serious: Yes (Other)
  Sender: FDA-Public Use
  Company Number: CA-JNJFOC-20230364987

PATIENT
  Age: 32 Year
  Sex: Female
  Weight: 108.96 kg

DRUGS (2)
  1. STELARA [Suspect]
     Active Substance: USTEKINUMAB
     Indication: Crohn^s disease
     Dosage: PATIENT HAD RECEIVED STELARA INJECTION ON JUL-2022. EXPIRY DATE: 01-OCT-2025. THERAPY START DATE ALS
     Route: 058
     Dates: start: 20220420
  2. STELARA [Suspect]
     Active Substance: USTEKINUMAB
     Route: 058

REACTIONS (13)
  - Haematochezia [Recovered/Resolved]
  - Defaecation urgency [Recovered/Resolved]
  - Abdominal pain [Unknown]
  - Diarrhoea [Unknown]
  - Frequent bowel movements [Recovered/Resolved]
  - Drug ineffective [Unknown]
  - Dyschezia [Unknown]
  - Alopecia [Unknown]
  - Sleep deficit [Unknown]
  - Flushing [Unknown]
  - Feeling hot [Unknown]
  - Rhinitis [Recovered/Resolved]
  - Off label use [Unknown]

NARRATIVE: CASE EVENT DATE: 20230206
